FAERS Safety Report 8368966-5 (Version None)
Quarter: 2012Q2

REPORT INFORMATION
  Report Type: 
  Country: None (occurrence: None)
  Receive Date: 20120518
  Receipt Date: 20120515
  Transmission Date: 20120825
  Serious: No
  Sender: FDA-Public Use
  Company Number: US-PFIZER INC-2012118382

PATIENT
  Sex: Female

DRUGS (2)
  1. DILANTIN [Suspect]
     Indication: CONVULSION
     Dosage: 100 MG, 3X/DAY
     Route: 048
  2. CALAN [Suspect]
     Indication: DIABETES MELLITUS
     Dosage: UNK, 1X/DAY
     Route: 048

REACTIONS (3)
  - WEIGHT DECREASED [None]
  - VISION BLURRED [None]
  - GASTRIC DISORDER [None]
